FAERS Safety Report 6003546-8 (Version None)
Quarter: 2008Q4

REPORT INFORMATION
  Report Type: 
  Country: None (occurrence: None)
  Receive Date: 20081216
  Receipt Date: 20081202
  Transmission Date: 20090506
  Serious: Yes (Other)
  Sender: FDA-Public Use
  Company Number: US-ELI_LILLY_AND_COMPANY-US200812001100

PATIENT
  Sex: Female

DRUGS (1)
  1. FORTEO [Suspect]
     Dates: start: 20070101

REACTIONS (5)
  - ANIMAL SCRATCH [None]
  - EYE DISORDER [None]
  - EYE PAIN [None]
  - OPTIC NEURITIS [None]
  - VISUAL ACUITY REDUCED [None]
